FAERS Safety Report 5961029-5 (Version None)
Quarter: 2008Q4

REPORT INFORMATION
  Report Type: 
  Country: None (occurrence: None)
  Receive Date: 20081121
  Receipt Date: 20080926
  Transmission Date: 20090506
  Serious: No
  Sender: FDA-Public Use
  Company Number: A0736470A

PATIENT
  Age: 70 Year
  Sex: Female

DRUGS (3)
  1. LANOXIN [Suspect]
     Indication: ATRIAL FIBRILLATION
     Dosage: .25MG UNKNOWN
     Route: 048
  2. ATIVAN [Concomitant]
  3. TOPROL-XL [Concomitant]

REACTIONS (8)
  - DEPRESSION [None]
  - DRUG INEFFECTIVE [None]
  - HEART RATE IRREGULAR [None]
  - LOCAL SWELLING [None]
  - MALAISE [None]
  - POOR QUALITY SLEEP [None]
  - RASH [None]
  - RASH PRURITIC [None]
